FAERS Safety Report 21590906 (Version 1)
Quarter: 2022Q4

REPORT INFORMATION
  Report Type: Spontaneous
  Country: CA (occurrence: CA)
  Receive Date: 20221114
  Receipt Date: 20221114
  Transmission Date: 20230113
  Serious: Yes (Other)
  Sender: FDA-Public Use
  Company Number: CA-SCALL-2022-CA-002219

PATIENT
  Age: 67 Year
  Sex: Male
  Weight: 56 kg

DRUGS (2)
  1. RABEPRAZOLE SODIUM [Suspect]
     Active Substance: RABEPRAZOLE SODIUM
     Indication: Gastrooesophageal reflux disease
     Dosage: 20 MG,1 D
     Route: 048
  2. ATORVASTATIN [Suspect]
     Active Substance: ATORVASTATIN
     Route: 065

REACTIONS (3)
  - Muscle spasms [Recovered/Resolved]
  - Abdominal discomfort [Recovered/Resolved]
  - Dry mouth [Recovered/Resolved]
